FAERS Safety Report 9536393 (Version 1)
Quarter: 2013Q2

REPORT INFORMATION
  Report Type: Spontaneous
  Country: US (occurrence: None)
  Receive Date: 20130507
  Receipt Date: 20130507
  Transmission Date: 20140414
  Serious: Yes (Other)
  Sender: FDA-Public Use
  Company Number: PHEH2012US024056

PATIENT
  Age: 63 Year
  Sex: Female
  Weight: 44.4 kg

DRUGS (10)
  1. AFINITOR (RAD) UNKNOWN [Suspect]
     Indication: CARCINOID TUMOUR
     Route: 048
     Dates: start: 20120925, end: 20121129
  2. LEVOXYL (LEVOTHYROXINE SODIUM) [Concomitant]
  3. ZEMPLAR (PARICALCITOL) [Concomitant]
  4. SODIUM CARBONATE (SODIUM CARBONATE ANHYDROUS) [Concomitant]
  5. MARNYS VITAMIN D (COLECALCIFEROL) [Concomitant]
  6. RENVELA (SEVELAMER CARBONATE) [Concomitant]
  7. SANDOSTATIN LAR (OCTREOTIDE ACETATE) [Concomitant]
  8. COMPAZINE (PROCHLORPERAZINE EDISYLATE) [Concomitant]
  9. VITAMINA B12 (CYANOCOBALAMIN) [Concomitant]
  10. PREDNISONE (PREDNISONE) [Concomitant]

REACTIONS (6)
  - Nausea [None]
  - Dehydration [None]
  - Diarrhoea [None]
  - Weight decreased [None]
  - Decreased appetite [None]
  - Dysgeusia [None]
